FAERS Safety Report 11158420 (Version 3)
Quarter: 2018Q4

REPORT INFORMATION
  Report Type: Spontaneous
  Country: US (occurrence: US)
  Receive Date: 20150603
  Receipt Date: 20181217
  Transmission Date: 20190204
  Serious: Yes (Other)
  Sender: FDA-Public Use
  Company Number: US-TEVA-566880ACC

PATIENT
  Age: 35 Year
  Sex: Female
  Weight: 76.73 kg

DRUGS (1)
  1. PARAGARD T 380A [Suspect]
     Active Substance: COPPER
     Indication: CONTRACEPTION
     Route: 015
     Dates: start: 20100514, end: 20140819

REACTIONS (6)
  - Complication associated with device [Not Recovered/Not Resolved]
  - Postpartum stress disorder [Unknown]
  - Abdominal pain [Recovered/Resolved]
  - Maternal exposure during pregnancy [Unknown]
  - Abortion induced [Recovered/Resolved]
  - Device breakage [Not Recovered/Not Resolved]

NARRATIVE: CASE EVENT DATE: 201408
